FAERS Safety Report 7075597-6 (Version None)
Quarter: 2010Q4

REPORT INFORMATION
  Report Type: 
  Country: None (occurrence: None)
  Receive Date: 20101030
  Receipt Date: 20101019
  Transmission Date: 20110411
  Serious: No
  Sender: FDA-Public Use
  Company Number: US-WYE-H18257710

PATIENT
  Age: 82 Year
  Sex: Female
  Weight: 55.84 kg

DRUGS (1)
  1. ADVIL PM [Suspect]
     Indication: INSOMNIA
     Dosage: 4 CAPLETS X 1
     Route: 048
     Dates: start: 20101018, end: 20101019

REACTIONS (2)
  - DRUG INEFFECTIVE [None]
  - OVERDOSE [None]
